FAERS Safety Report 7293006-9 (Version None)
Quarter: 2011Q1

REPORT INFORMATION
  Report Type: 
  Country: None (occurrence: None)
  Receive Date: 20110215
  Receipt Date: 20110208
  Transmission Date: 20110831
  Serious: Yes (Death, Other)
  Sender: FDA-Public Use
  Company Number: US-CELGENEUS-163-21880-11021263

PATIENT
  Age: 73 Year
  Sex: Female

DRUGS (3)
  1. REVLIMID [Suspect]
     Indication: MYELOPROLIFERATIVE DISORDER
     Route: 048
  2. REVLIMID [Suspect]
     Indication: 5Q MINUS SYNDROME
  3. REVLIMID [Suspect]
     Indication: CYTOGENETIC ABNORMALITY

REACTIONS (11)
  - DEATH [None]
  - SPLENOMEGALY [None]
  - WHITE BLOOD CELL COUNT INCREASED [None]
  - FATIGUE [None]
  - BONE PAIN [None]
  - ASTHENIA [None]
  - INSOMNIA [None]
  - NO THERAPEUTIC RESPONSE [None]
  - THROMBOCYTOPENIA [None]
  - DYSPNOEA [None]
  - WEIGHT DECREASED [None]
